FAERS Safety Report 10062203 (Version 2)
Quarter: 2014Q2

REPORT INFORMATION
  Report Type: Spontaneous
  Country: JP (occurrence: JP)
  Receive Date: 20140407
  Receipt Date: 20140416
  Transmission Date: 20141212
  Serious: Yes (Hospitalization)
  Sender: FDA-Public Use
  Company Number: JP-NOVOPROD-405351

PATIENT
  Age: 72 Year
  Sex: Female

DRUGS (7)
  1. NOVORAPID CHU FLEXPEN [Suspect]
     Indication: TYPE 2 DIABETES MELLITUS
     Dosage: 7 U BEFORE BREAKFAST, 4 UNITS BEFORE OTHER MEALS
     Route: 065
     Dates: start: 201111
  2. NOVORAPID CHU FLEXPEN [Interacting]
     Dosage: 3 UNITS BEFORE MEALS
     Route: 065
  3. LANTUS [Interacting]
     Indication: TYPE 2 DIABETES MELLITUS
     Dosage: 12 U, QD (BEFORE BEDTIME)
     Route: 065
     Dates: start: 2009
  4. PREDNISOLONE [Interacting]
     Indication: AUTOIMMUNE HAEMOLYTIC ANAEMIA
     Dosage: 70 MG, QD
     Route: 048
  5. PREDNISOLONE [Interacting]
     Dosage: 50 MG, QD
     Route: 048
  6. VOGLIBOSE [Concomitant]
     Indication: TYPE 2 DIABETES MELLITUS
     Dosage: 0.2MG BEFORE MEALS
  7. BUFORMIN HYDROCHLORIDE [Concomitant]
     Indication: TYPE 2 DIABETES MELLITUS
     Dosage: 100MG BEFORE BREAKFAST

REACTIONS (2)
  - Lung abscess [Recovered/Resolved]
  - Hypoglycaemic unconsciousness [Recovered/Resolved]
